FAERS Safety Report 16815874 (Version 1)
Quarter: 2019Q3

REPORT INFORMATION
  Report Type: Spontaneous
  Country: US (occurrence: US)
  Receive Date: 20190917
  Receipt Date: 20190917
  Transmission Date: 20191005
  Serious: No
  Sender: FDA-Public Use
  Company Number: US-BION-007781

PATIENT
  Age: 14 Year
  Sex: Female

DRUGS (1)
  1. ZYRTEC [Suspect]
     Active Substance: CETIRIZINE HYDROCHLORIDE
     Indication: HYPERSENSITIVITY
     Dosage: ONE GEL DAILY
     Route: 048
     Dates: start: 20190115, end: 20190120

REACTIONS (1)
  - Therapeutic product effect incomplete [Not Recovered/Not Resolved]
